FAERS Safety Report 6105718-0 (Version None)
Quarter: 2009Q1

REPORT INFORMATION
  Report Type: 
  Country: None (occurrence: None)
  Receive Date: 20090304
  Receipt Date: 20090304
  Transmission Date: 20090719
  Serious: Yes (Other)
  Sender: FDA-Public Use
  Company Number: None

PATIENT
  Sex: Female
  Weight: 60.45 kg

DRUGS (6)
  1. MESALAMINE [Suspect]
     Dosage: 400MG TABLET DR 400 MG TID ORAL
     Route: 048
     Dates: start: 20090225, end: 20090302
  2. ATENOLOL [Concomitant]
  3. EVISTA [Concomitant]
  4. LEVOXYL [Concomitant]
  5. LISINOPRIL [Concomitant]
  6. MVI (MULTIVITAMINS) [Concomitant]

REACTIONS (1)
  - DIARRHOEA [None]
